FAERS Safety Report 11374678 (Version 1)
Quarter: 2015Q3

REPORT INFORMATION
  Report Type: Spontaneous
  Country: GB (occurrence: GB)
  Receive Date: 20150813
  Receipt Date: 20150813
  Transmission Date: 20151125
  Serious: Yes (Life-Threatening, Hospitalization)
  Sender: FDA-Public Use
  Company Number: GB-ASTRAZENECA-2015SE76605

PATIENT
  Age: 84 Year
  Sex: Male

DRUGS (13)
  1. GABAPENTIN. [Concomitant]
     Active Substance: GABAPENTIN
  2. ATORVASTATIN [Concomitant]
     Active Substance: ATORVASTATIN
  3. TAMSULOSIN [Concomitant]
     Active Substance: TAMSULOSIN
  4. TICAGRELOR [Suspect]
     Active Substance: TICAGRELOR
     Indication: ACUTE MYOCARDIAL INFARCTION
     Route: 048
     Dates: start: 20141201, end: 20150729
  5. TRAMADOL. [Concomitant]
     Active Substance: TRAMADOL
  6. ASPIRIN. [Suspect]
     Active Substance: ASPIRIN
     Indication: INTERMITTENT CLAUDICATION
     Route: 048
     Dates: start: 1988
  7. AMLODIPINE [Concomitant]
     Active Substance: AMLODIPINE BESYLATE
  8. FUROSEMIDE. [Concomitant]
     Active Substance: FUROSEMIDE
  9. PARACETAMOL [Concomitant]
     Active Substance: ACETAMINOPHEN
  10. AMIODARONE [Concomitant]
     Active Substance: AMIODARONE
  11. RANITIDINE [Concomitant]
     Active Substance: RANITIDINE\RANITIDINE HYDROCHLORIDE
  12. ATENOLOL. [Concomitant]
     Active Substance: ATENOLOL
  13. ISOSORBIDE MONONITRATE. [Concomitant]
     Active Substance: ISOSORBIDE MONONITRATE

REACTIONS (4)
  - Chest pain [Recovering/Resolving]
  - Faeces discoloured [Unknown]
  - Gastrointestinal haemorrhage [Recovering/Resolving]
  - Haemoglobin decreased [Recovering/Resolving]

NARRATIVE: CASE EVENT DATE: 20150729
